FAERS Safety Report 5104735-7 (Version None)
Quarter: 2006Q3

REPORT INFORMATION
  Report Type: 
  Country: None (occurrence: None)
  Receive Date: 20060914
  Receipt Date: 20060906
  Transmission Date: 20061208
  Serious: Yes (Hospitalization, Other)
  Sender: FDA-Public Use
  Company Number: US-JNJFOC-20060702708

PATIENT
  Sex: Male
  Weight: 145.15 kg

DRUGS (12)
  1. REMICADE [Suspect]
     Route: 042
  2. REMICADE [Suspect]
     Route: 042
  3. REMICADE [Suspect]
     Indication: RHEUMATOID ARTHRITIS
     Route: 042
  4. ANTIBIOTICS [Suspect]
     Indication: INFECTION
  5. IV THERAPY [Suspect]
     Indication: INFECTION
     Route: 042
  6. METHOTREXATE [Concomitant]
  7. COUMADIN [Concomitant]
     Indication: ATRIAL FIBRILLATION
  8. COREG [Concomitant]
  9. LASIX [Concomitant]
     Indication: CARDIAC FAILURE CONGESTIVE
  10. VASOTEC [Concomitant]
  11. ALDACTONE [Concomitant]
  12. DIGOXIN [Concomitant]

REACTIONS (8)
  - CELLULITIS [None]
  - FOOD POISONING [None]
  - GALLBLADDER DISORDER [None]
  - INFLUENZA LIKE ILLNESS [None]
  - INTERNATIONAL NORMALISED RATIO INCREASED [None]
  - SEPSIS [None]
  - SPORTS INJURY [None]
  - THROAT TIGHTNESS [None]
